FAERS Safety Report 25477660 (Version 1)
Quarter: 2025Q2

REPORT INFORMATION
  Report Type: Report from Study
  Country: NL (occurrence: NL)
  Receive Date: 20250625
  Receipt Date: 20250625
  Transmission Date: 20250717
  Serious: Yes (Other)
  Sender: TEVA
  Company Number: NL-TEVA-VS-3344687

PATIENT
  Age: 41 Year
  Sex: Female

DRUGS (1)
  1. FREMANEZUMAB [Suspect]
     Active Substance: FREMANEZUMAB
     Indication: Migraine without aura
     Route: 058

REACTIONS (1)
  - Bundle branch block left [Unknown]
